FAERS Safety Report 15948148 (Version 7)
Quarter: 2019Q3

REPORT INFORMATION
  Report Type: Report from Study
  Country: PE (occurrence: PE)
  Receive Date: 20190211
  Receipt Date: 20190717
  Transmission Date: 20191004
  Serious: Yes (Hospitalization, Other)
  Sender: FDA-Public Use
  Company Number: PHHY2019PE031738

PATIENT
  Age: 57 Year
  Sex: Female
  Weight: 47 kg

DRUGS (3)
  1. PREGABALIN. [Concomitant]
     Active Substance: PREGABALIN
     Indication: PRODUCT USED FOR UNKNOWN INDICATION
     Dosage: UNK UNK, QHS
     Route: 065
  2. PANADOL [Concomitant]
     Active Substance: ACETAMINOPHEN
     Indication: PRODUCT USED FOR UNKNOWN INDICATION
     Dosage: UNK UNK, QHS
     Route: 065
  3. AFINITOR [Suspect]
     Active Substance: EVEROLIMUS
     Indication: NEUROENDOCRINE TUMOUR
     Dosage: 10 MG, QD (ONCE DAILY)
     Route: 048
     Dates: start: 20171213

REACTIONS (16)
  - Pneumonitis [Recovering/Resolving]
  - Productive cough [Recovering/Resolving]
  - Weight decreased [Unknown]
  - Anaemia [Unknown]
  - Fluid retention [Recovering/Resolving]
  - Back pain [Recovering/Resolving]
  - Contusion [Recovering/Resolving]
  - Pneumonia [Recovered/Resolved]
  - Haemoptysis [Recovering/Resolving]
  - Joint swelling [Recovering/Resolving]
  - Neuroendocrine tumour [Not Recovered/Not Resolved]
  - Immobile [Recovering/Resolving]
  - Recurrent cancer [Not Recovered/Not Resolved]
  - Spinal disorder [Recovering/Resolving]
  - Dysstasia [Recovering/Resolving]
  - Fall [Recovering/Resolving]

NARRATIVE: CASE EVENT DATE: 20190121
